FAERS Safety Report 10958706 (Version 1)
Quarter: 2015Q1

REPORT INFORMATION
  Report Type: Spontaneous
  Country: US (occurrence: None)
  Receive Date: 20150226
  Receipt Date: 20150226
  Transmission Date: 20150721
  Serious: Yes (Other)
  Sender: FDA-Public Use
  Company Number: TPA2009A02585

PATIENT
  Sex: Female

DRUGS (1)
  1. PREVACID [Suspect]
     Active Substance: LANSOPRAZOLE
     Indication: PRODUCT USED FOR UNKNOWN INDICATION
     Dosage: MID AUG
     Route: 048
     Dates: start: 200811, end: 200908

REACTIONS (12)
  - Eating disorder [None]
  - Arthralgia [None]
  - Seizure [None]
  - Acne [None]
  - Flushing [None]
  - Tremor [None]
  - Vomiting [None]
  - Dry mouth [None]
  - Abdominal pain upper [None]
  - Paraesthesia [None]
  - Thinking abnormal [None]
  - Myalgia [None]

NARRATIVE: CASE EVENT DATE: 200906
